FAERS Safety Report 7070029-6 (Version None)
Quarter: 2010Q4

REPORT INFORMATION
  Report Type: 
  Country: None (occurrence: None)
  Receive Date: 20101028
  Receipt Date: 20100707
  Transmission Date: 20110411
  Serious: No
  Sender: FDA-Public Use
  Company Number: US-WYE-H16793310

PATIENT
  Age: 47 Year
  Sex: Female

DRUGS (14)
  1. ADVIL [Suspect]
     Indication: PAIN
     Dosage: UNKNONW
     Route: 048
  2. XANAX [Interacting]
     Indication: ANXIETY
     Dosage: UNKNOWN DOSE EVERY OTHER DAY
     Route: 048
     Dates: start: 20080101
  3. XANAX [Interacting]
     Indication: SLEEP DISORDER
  4. GABAPENTIN [Interacting]
     Indication: NEUROPATHY PERIPHERAL
     Dosage: 300 MG DAILY
     Route: 048
  5. LEVOXYL [Interacting]
     Indication: HYPOTHYROIDISM
     Dosage: 100 MG DAILY
     Route: 048
  6. ESOMEPRAZOLE MAGNESIUM [Interacting]
     Indication: GASTROOESOPHAGEAL REFLUX DISEASE
     Dosage: UNKNOWN
     Route: 048
  7. CYMBALTA [Interacting]
     Indication: PAIN
     Dosage: UNKNOWN
     Route: 065
  8. MIRTAZAPINE [Interacting]
     Indication: PRODUCT USED FOR UNKNOWN INDICATION
     Dosage: UNKNOWN
     Route: 065
  9. FLUTICASONE PROPIONATE/SALMETEROL XINAFOATE [Interacting]
     Indication: ASTHMA
     Dosage: UNKNOWN
     Route: 065
  10. FLUTICASONE PROPIONATE [Interacting]
     Indication: ASTHMA
     Dosage: UNKNOWN
     Route: 065
  11. ATROVENT [Interacting]
     Indication: ASTHMA
     Dosage: UNKNOWN
     Route: 065
  12. ACETYLSALICYLIC ACID SRT [Interacting]
     Indication: PAIN
     Dosage: UNKNOWN
     Route: 065
  13. MIRALAX [Concomitant]
     Indication: CONSTIPATION
     Dosage: UNKNOWN
     Route: 065
  14. SIMVASTATIN [Interacting]
     Indication: HYPERCHOLESTEROLAEMIA
     Dosage: UNKNOWN
     Route: 065

REACTIONS (2)
  - DRUG INTERACTION [None]
  - RASH [None]
